FAERS Safety Report 4332670-0 (Version None)
Quarter: 2004Q1

REPORT INFORMATION
  Report Type: 
  Country: None (occurrence: None)
  Receive Date: 20040330
  Receipt Date: 20040311
  Transmission Date: 20041129
  Serious: Yes (Hospitalization)
  Sender: FDA-Public Use
  Company Number: A02200400912

PATIENT
  Age: 32 Year
  Sex: Female

DRUGS (6)
  1. PLAQUENIL [Suspect]
     Dosage: 50 MG OD
     Route: 048
     Dates: end: 19950910
  2. PROZAC [Suspect]
     Dosage: 600 MG QD
     Route: 048
     Dates: start: 19950906, end: 19950910
  3. MYOLASTAN  (TETRAZEPAM) - [Concomitant]
     Dosage: 20 MG QD
     Route: 048
     Dates: end: 19950912
  4. CYTOTEC [Suspect]
     Dosage: 200 MCG OD
     Route: 048
     Dates: end: 19950912
  5. KETOPROFEN [Suspect]
     Dosage: 300 MG QD
     Dates: end: 19950912
  6. LAMALINE [Suspect]
     Dosage: 1020 MG QD
     Route: 048
     Dates: end: 19950910

REACTIONS (2)
  - SYSTEMIC LUPUS ERYTHEMATOSUS [None]
  - TOXIC EPIDERMAL NECROLYSIS [None]
